FAERS Safety Report 8096966-1 (Version None)
Quarter: 2012Q1

REPORT INFORMATION
  Report Type: 
  Country: None (occurrence: None)
  Receive Date: 20120129
  Receipt Date: 20111220
  Transmission Date: 20120608
  Serious: No
  Sender: FDA-Public Use
  Company Number: US-ABBOTT-11P-163-0837678-00

PATIENT
  Sex: Male

DRUGS (2)
  1. HUMIRA [Suspect]
     Indication: CROHN'S DISEASE
     Route: 058
     Dates: start: 20110301
  2. PREDNISONE TAB [Suspect]
     Indication: CROHN'S DISEASE
     Dates: start: 20110401, end: 20110704

REACTIONS (5)
  - RASH [None]
  - PRURITUS [None]
  - CROHN'S DISEASE [None]
  - PAPULE [None]
  - PITYRIASIS ROSEA [None]
